FAERS Safety Report 19201685 (Version 2)
Quarter: 2021Q2

REPORT INFORMATION
  Report Type: Spontaneous
  Country: DK (occurrence: DK)
  Receive Date: 20210430
  Receipt Date: 20210513
  Transmission Date: 20210717
  Serious: Yes (Hospitalization, Other)
  Sender: FDA-Public Use
  Company Number: DK-PFIZER INC-2021440962

PATIENT
  Sex: Male

DRUGS (1)
  1. SERTRALINE HCL [Suspect]
     Active Substance: SERTRALINE HYDROCHLORIDE
     Indication: DEPRESSION
     Dosage: UNK
     Route: 065
     Dates: start: 2017

REACTIONS (6)
  - Restlessness [Unknown]
  - Discomfort [Unknown]
  - Obsessive thoughts [Unknown]
  - Insomnia [Unknown]
  - Dry mouth [Unknown]
  - Anxiety [Unknown]
